FAERS Safety Report 25095038 (Version 1)
Quarter: 2025Q1

REPORT INFORMATION
  Report Type: Spontaneous
  Country: CN (occurrence: CN)
  Receive Date: 20250319
  Receipt Date: 20250319
  Transmission Date: 20250409
  Serious: Yes (Life-Threatening, Other)
  Sender: ROCHE
  Company Number: CN-ROCHE-10000231716

PATIENT
  Age: 57 Year
  Sex: Female
  Weight: 55 kg

DRUGS (1)
  1. RITUXIMAB [Suspect]
     Active Substance: RITUXIMAB
     Indication: Pemphigus
     Route: 042
     Dates: start: 20250306, end: 20250306

REACTIONS (2)
  - Shock [Recovered/Resolved]
  - Off label use [Unknown]

NARRATIVE: CASE EVENT DATE: 20250306
